FAERS Safety Report 12185362 (Version 5)
Quarter: 2016Q4

REPORT INFORMATION
  Report Type: Spontaneous
  Country: US (occurrence: US)
  Receive Date: 20160316
  Receipt Date: 20161101
  Transmission Date: 20170207
  Serious: No
  Sender: FDA-Public Use
  Company Number: US-AMGEN-USASP2016016973

PATIENT
  Age: 38 Year
  Sex: Female

DRUGS (3)
  1. IMLYGIC [Suspect]
     Active Substance: TALIMOGENE LAHERPAREPVEC
     Indication: MALIGNANT MELANOMA
     Dosage: 2 ML, UNK
     Route: 065
  2. IMLYGIC [Suspect]
     Active Substance: TALIMOGENE LAHERPAREPVEC
     Dosage: 108 PFU, UNK
     Route: 065
     Dates: end: 20160426
  3. IMLYGIC [Suspect]
     Active Substance: TALIMOGENE LAHERPAREPVEC
     Dosage: 0.5 ML, UNK
     Route: 065

REACTIONS (4)
  - Oral herpes [Unknown]
  - Pyrexia [Recovered/Resolved]
  - Rash vesicular [Not Recovered/Not Resolved]
  - Herpes simplex [Not Recovered/Not Resolved]

NARRATIVE: CASE EVENT DATE: 20160208
